FAERS Safety Report 18242157 (Version 2)
Quarter: 2020Q3

REPORT INFORMATION
  Report Type: Spontaneous
  Country: US (occurrence: US)
  Receive Date: 20200908
  Receipt Date: 20200915
  Transmission Date: 20201103
  Serious: Yes (Life-Threatening, Hospitalization)
  Sender: FDA-Public Use
  Company Number: US-ELI_LILLY_AND_COMPANY-US202008012433

PATIENT
  Sex: Female

DRUGS (3)
  1. HUMALOG [Suspect]
     Active Substance: INSULIN LISPRO
     Indication: DIABETES MELLITUS
     Dosage: 35 U, OTHER (BEFORE MEALS)
     Route: 058
     Dates: start: 2007
  2. HUMALOG [Suspect]
     Active Substance: INSULIN LISPRO
     Dosage: 32 U, UNKNOWN
     Route: 058
  3. LANTUS [Concomitant]
     Active Substance: INSULIN GLARGINE
     Indication: DIABETES MELLITUS
     Dosage: 10 U, UNKNOWN

REACTIONS (9)
  - Weight decreased [Recovering/Resolving]
  - Diabetic coma [Recovered/Resolved]
  - Loss of consciousness [Recovered/Resolved]
  - Blood glucose fluctuation [Recovering/Resolving]
  - Malaise [Recovering/Resolving]
  - Product dose omission issue [Recovering/Resolving]
  - Dehydration [Recovered/Resolved]
  - Blood glucose increased [Recovering/Resolving]
  - Feeling abnormal [Unknown]

NARRATIVE: CASE EVENT DATE: 20200822
